FAERS Safety Report 23376502 (Version 1)
Quarter: 2024Q1

REPORT INFORMATION
  Report Type: Spontaneous
  Country: FR (occurrence: FR)
  Receive Date: 20240108
  Receipt Date: 20240108
  Transmission Date: 20240409
  Serious: Yes (Other)
  Sender: FDA-Public Use
  Company Number: FR-AFSSAPS-RS2023001042

PATIENT
  Age: 88 Year
  Sex: Female
  Weight: 82 kg

DRUGS (1)
  1. AMOXICILLIN [Suspect]
     Active Substance: AMOXICILLIN
     Indication: Oligoarthritis
     Dosage: UNK
     Route: 042
     Dates: start: 20231208, end: 20231211

REACTIONS (2)
  - Neutropenia [Not Recovered/Not Resolved]
  - Renal failure [Recovered/Resolved]

NARRATIVE: CASE EVENT DATE: 20231211
